FAERS Safety Report 9242417 (Version 1)
Quarter: 2013Q2

REPORT INFORMATION
  Report Type: Spontaneous
  Country: US (occurrence: US)
  Receive Date: 20130419
  Receipt Date: 20130419
  Transmission Date: 20140414
  Serious: No
  Sender: FDA-Public Use
  Company Number: US-PFIZER INC-2013121369

PATIENT
  Age: 56 Year
  Sex: Female

DRUGS (14)
  1. NEURONTIN [Suspect]
     Dosage: UNK
  2. DILANTIN [Suspect]
     Dosage: UNK
  3. FENTANYL [Suspect]
     Dosage: UNK
  4. DESYREL [Suspect]
     Dosage: UNK
  5. ULTRAM [Suspect]
     Dosage: UNK
  6. VICODIN [Suspect]
     Dosage: UNK
  7. BACLOFEN [Suspect]
     Dosage: UNK
  8. STADOL [Suspect]
     Dosage: UNK
  9. TEGRETOL [Suspect]
     Dosage: UNK
  10. VALIUM [Suspect]
     Dosage: UNK
  11. TORADOL [Suspect]
     Dosage: UNK
  12. TOPAMAX [Suspect]
     Dosage: UNK
  13. PHENERGAN [Suspect]
     Dosage: UNK
  14. COMPAZINE [Suspect]
     Dosage: UNK

REACTIONS (1)
  - Drug hypersensitivity [Unknown]
